FAERS Safety Report 7058486-2 (Version None)
Quarter: 2010Q4

REPORT INFORMATION
  Report Type: 
  Country: None (occurrence: None)
  Receive Date: 20101022
  Receipt Date: 20101015
  Transmission Date: 20110411
  Serious: Yes (Other)
  Sender: FDA-Public Use
  Company Number: CHPA2010US16305

PATIENT
  Age: 52 Year
  Sex: Male
  Weight: 82.086 kg

DRUGS (1)
  1. EXCEDRIN (MIGRAINE) [Suspect]
     Indication: HEADACHE
     Dosage: 2-3 CAPLETS, TWICE PER DAY
     Route: 048
     Dates: start: 19950101

REACTIONS (5)
  - DRUG INEFFECTIVE [None]
  - INCORRECT DOSE ADMINISTERED [None]
  - INTENTIONAL DRUG MISUSE [None]
  - KNEE OPERATION [None]
  - SPINAL FUSION SURGERY [None]
